FAERS Safety Report 8761724 (Version 2)
Quarter: 2012Q4

REPORT INFORMATION
  Report Type: Spontaneous
  Country: US (occurrence: None)
  Receive Date: 20120821
  Receipt Date: 20120924
  Transmission Date: 20130627
  Serious: Yes (Hospitalization)
  Sender: FDA-Public Use
  Company Number: ACO_31511_2012

PATIENT
  Age: 69 Year
  Sex: Female

DRUGS (13)
  1. AMPYRA [Suspect]
     Indication: DRUG USE FOR UNKNOWN INDICATION
     Dates: start: 20120712, end: 20120723
  2. AMPYRA [Suspect]
     Indication: DRUG USE FOR UNKNOWN INDICATION
     Dates: start: 20120725
  3. COPAXONE (GLATIRAMER ACETATE) [Concomitant]
  4. LIPITOR (ATORVASTATIN CALCIUM) [Concomitant]
  5. ULTRAM (TRAMADOL HYDROCHLORIDE) [Concomitant]
  6. ACIPHEX (RABEPRAZOLE SODIUM) [Concomitant]
  7. XANAX (ALPRAZOLAM) [Concomitant]
  8. PAXIL (PAROXETINE HYDROCHLORIDE) [Concomitant]
  9. LASIX (FUROSEMIDE) [Concomitant]
  10. SYNTHROID (LEVOTHYROXINE SODIUM) [Concomitant]
  11. KLOR-CON (POTASSIUM CHLORIDE) [Concomitant]
  12. ADVAIR (FLUTICASONE PROPIONATE, SALMETEROL XINAFOATE) [Concomitant]
  13. ALL OTHER THERAPEUTIC PRODUCTS [Concomitant]

REACTIONS (3)
  - Cellulitis [None]
  - Cystitis [None]
  - Abasia [None]
